FAERS Safety Report 19665954 (Version 1)
Quarter: 2021Q3

REPORT INFORMATION
  Report Type: Spontaneous
  Country: CN (occurrence: CN)
  Receive Date: 20210805
  Receipt Date: 20210805
  Transmission Date: 20211014
  Serious: Yes (Hospitalization, Other)
  Sender: FDA-Public Use
  Company Number: CN-BAXTER-2021BAX023452

PATIENT
  Age: 57 Year
  Sex: Female
  Weight: 57 kg

DRUGS (6)
  1. PIRARUBICIN HYDROCHLORIDE [Suspect]
     Active Substance: PIRARUBICIN HYDROCHLORIDE
     Dosage: DAY 1: PIRARUBICIN HYDROCHLORIDE 100 MG + 5% GLUCOSE 100 ML; Q14D
     Route: 041
     Dates: start: 20210702, end: 20210702
  2. PIRARUBICIN HYDROCHLORIDE [Suspect]
     Active Substance: PIRARUBICIN HYDROCHLORIDE
     Indication: BREAST CANCER
     Route: 065
  3. ENDOXAN [Suspect]
     Active Substance: CYCLOPHOSPHAMIDE
     Dosage: DAY 1: ENDOXAN 1000 MG + 0.9% SODIUM CHLORIDE 100 ML; Q14D
     Route: 041
     Dates: start: 20210702, end: 20210702
  4. 0.9% SODIUM CHLORIDE INJECTION [Suspect]
     Active Substance: SODIUM CHLORIDE
     Indication: MEDICATION DILUTION
     Dosage: DAY 1: ENDOXAN 1000 MG + 0.9% SODIUM CHLORIDE 100 ML
     Route: 041
     Dates: start: 20210702, end: 20210702
  5. ENDOXAN [Suspect]
     Active Substance: CYCLOPHOSPHAMIDE
     Indication: BREAST CANCER
     Route: 065
  6. 5% GLUCOSE  INJECTION [Suspect]
     Active Substance: DEXTROSE
     Indication: MEDICATION DILUTION
     Dosage: DAY 1: PIRARUBICIN HYDROCHLORIDE 100 MG + 5% GLUCOSE 100 ML
     Route: 041
     Dates: start: 20210702, end: 20210702

REACTIONS (2)
  - Myelosuppression [Recovered/Resolved]
  - Myelosuppression [Recovered/Resolved]

NARRATIVE: CASE EVENT DATE: 20210717
